FAERS Safety Report 15128682 (Version 20)
Quarter: 2021Q1

REPORT INFORMATION
  Report Type: Spontaneous
  Country: JP (occurrence: JP)
  Receive Date: 20180711
  Receipt Date: 20210303
  Transmission Date: 20210419
  Serious: Yes (Hospitalization, Other)
  Sender: FDA-Public Use
  Company Number: JP-BRISTOL-MYERS SQUIBB COMPANY-BMS-2018-057952

PATIENT
  Age: 70 Year
  Sex: Female
  Weight: 48 kg

DRUGS (1)
  1. OPDIVO [Suspect]
     Active Substance: NIVOLUMAB
     Indication: METASTATIC RENAL CELL CARCINOMA
     Dosage: 140 MILLIGRAM/DAY
     Route: 041
     Dates: start: 20170629, end: 20171006

REACTIONS (12)
  - Hypoglycaemia [Recovering/Resolving]
  - Amylase increased [Recovered/Resolved]
  - Decreased appetite [Recovered/Resolved]
  - Secondary adrenocortical insufficiency [Not Recovered/Not Resolved]
  - Electrolyte imbalance [Not Recovered/Not Resolved]
  - Cataract [Not Recovered/Not Resolved]
  - Malignant neoplasm progression [Unknown]
  - Autoimmune pancreatitis [Recovered/Resolved]
  - Delirium [Recovered/Resolved]
  - Nasopharyngitis [Recovered/Resolved]
  - Malaise [Recovered/Resolved]
  - Pyrexia [Recovered/Resolved]

NARRATIVE: CASE EVENT DATE: 20170915
